FAERS Safety Report 11380144 (Version 1)
Quarter: 2015Q3

REPORT INFORMATION
  Report Type: Spontaneous
  Country: US (occurrence: US)
  Receive Date: 20150814
  Receipt Date: 20150814
  Transmission Date: 20151125
  Serious: No
  Sender: FDA-Public Use
  Company Number: US-BIOGENIDEC-2015BI109340

PATIENT
  Sex: Male

DRUGS (1)
  1. TECFIDERA [Suspect]
     Active Substance: DIMETHYL FUMARATE
     Indication: PRODUCT USED FOR UNKNOWN INDICATION

REACTIONS (9)
  - Intervertebral disc protrusion [Unknown]
  - Paraparesis [Unknown]
  - Lymphocyte count abnormal [Unknown]
  - Spinal column stenosis [Unknown]
  - Spinal muscular atrophy [Unknown]
  - Muscular weakness [Unknown]
  - Demyelination [Unknown]
  - Vitamin D decreased [Unknown]
  - Antinuclear antibody positive [Unknown]
